FAERS Safety Report 10191361 (Version 3)
Quarter: 2015Q2

REPORT INFORMATION
  Report Type: Spontaneous
  Country: JP (occurrence: JP)
  Receive Date: 20140523
  Receipt Date: 20150615
  Transmission Date: 20150821
  Serious: Yes (Life-Threatening, Hospitalization, Disabling)
  Sender: FDA-Public Use
  Company Number: JP-MYLANLABS-2014S1011185

PATIENT

DRUGS (6)
  1. DECADRON (DEXAMETHASONE SODIUM PHOSPHATE) [Concomitant]
     Active Substance: DEXAMETHASONE SODIUM PHOSPHATE
     Indication: PRODUCT USED FOR UNKNOWN INDICATION
     Dosage: 15.5 MG,TOTAL
     Route: 042
     Dates: start: 20131205, end: 20131205
  2. CARBOPLATIN INJECTION 50 MG ^NK^ [Suspect]
     Active Substance: CARBOPLATIN
     Indication: SQUAMOUS CELL CARCINOMA OF THE CERVIX
     Dosage: 681 MG,TOTAL
     Route: 041
     Dates: start: 20131205, end: 20131205
  3. KYTRIL [Concomitant]
     Active Substance: GRANISETRON HYDROCHLORIDE
     Indication: PRODUCT USED FOR UNKNOWN INDICATION
     Dosage: 3 MG,TOTAL
     Route: 042
     Dates: start: 20131205, end: 20131205
  4. PACLITAXEL. [Suspect]
     Active Substance: PACLITAXEL
     Indication: SQUAMOUS CELL CARCINOMA OF THE CERVIX
     Dosage: 257 MG,TOTAL
     Route: 041
     Dates: start: 20131205, end: 20131205
  5. ZANTAC [Concomitant]
     Active Substance: RANITIDINE HYDROCHLORIDE
     Indication: PRODUCT USED FOR UNKNOWN INDICATION
     Dosage: 50 MG,TOTAL
     Route: 042
     Dates: start: 20131205, end: 20131205
  6. VENA /00000402/ [Concomitant]
     Indication: PRODUCT USED FOR UNKNOWN INDICATION
     Dosage: 50 MG,TOTAL
     Route: 048
     Dates: start: 20131205, end: 20131205

REACTIONS (12)
  - Disseminated intravascular coagulation [Recovered/Resolved]
  - Pancytopenia [Unknown]
  - Septic shock [Recovered/Resolved]
  - Multi-organ failure [Recovered/Resolved]
  - Ileus paralytic [Recovered/Resolved]
  - Pleural effusion [Unknown]
  - Pain [Unknown]
  - Enterocolitis [Not Recovered/Not Resolved]
  - Renal failure [Recovered/Resolved]
  - Small intestinal haemorrhage [Recovered/Resolved]
  - Hypovolaemic shock [Recovered/Resolved]
  - Shock haemorrhagic [Recovered/Resolved]

NARRATIVE: CASE EVENT DATE: 20131206
